FAERS Safety Report 10219502 (Version 6)
Quarter: 2014Q4

REPORT INFORMATION
  Report Type: Spontaneous
  Country: US (occurrence: US)
  Receive Date: 20140605
  Receipt Date: 20141218
  Transmission Date: 20150528
  Serious: Yes (Death, Hospitalization, Disabling, Other)
  Sender: FDA-Public Use
  Company Number: US-009507513-1406USA002188

PATIENT
  Sex: Female
  Weight: 80 kg

DRUGS (3)
  1. JANUVIA [Suspect]
     Active Substance: SITAGLIPTIN PHOSPHATE
     Dosage: 25 MG, QD
     Route: 048
     Dates: start: 20080628
  2. JANUVIA [Suspect]
     Active Substance: SITAGLIPTIN PHOSPHATE
     Indication: TYPE 2 DIABETES MELLITUS
     Dosage: 50 MG, UNK
     Route: 048
     Dates: start: 20080602, end: 20100305
  3. VICTOZA [Suspect]
     Active Substance: LIRAGLUTIDE
     Indication: TYPE 2 DIABETES MELLITUS
     Dosage: 18MG/3ML
     Dates: start: 20100520, end: 201009

REACTIONS (50)
  - Coma [Unknown]
  - Chronic kidney disease [Not Recovered/Not Resolved]
  - Gastrointestinal haemorrhage [Unknown]
  - Increased tendency to bruise [Unknown]
  - Thyroid disorder [Unknown]
  - Iron deficiency anaemia [Unknown]
  - Hypokalaemia [Unknown]
  - Chronic gastritis [Not Recovered/Not Resolved]
  - Metaplasia [Unknown]
  - Pulmonary hypertension [Unknown]
  - Anaemia [Not Recovered/Not Resolved]
  - Osteoarthritis [Unknown]
  - Asthenia [Unknown]
  - Pulmonary infarction [Unknown]
  - Constipation [Unknown]
  - Pancreatic carcinoma metastatic [Fatal]
  - Cholecystectomy [Unknown]
  - Intrathecal pump insertion [Unknown]
  - Pulmonary embolism [Unknown]
  - Depression [Unknown]
  - Dizziness [Unknown]
  - Cellulitis [Unknown]
  - Pancreatitis acute [Unknown]
  - Syncope [Unknown]
  - Fall [Unknown]
  - Diarrhoea [Unknown]
  - Pleural effusion [Unknown]
  - Influenza [Unknown]
  - Urinary tract infection enterococcal [Unknown]
  - Urinary hesitation [Unknown]
  - Malaise [Unknown]
  - Fatigue [Unknown]
  - Cardiac failure congestive [Unknown]
  - Anxiety [Unknown]
  - Ocular icterus [Unknown]
  - Stasis dermatitis [Not Recovered/Not Resolved]
  - Tricuspid valve disease [Unknown]
  - Atrophy [Unknown]
  - Pneumonia [Unknown]
  - Blood disorder [Unknown]
  - Chronic obstructive pulmonary disease [Not Recovered/Not Resolved]
  - Metastases to liver [Unknown]
  - Insomnia [Unknown]
  - Pain [Not Recovered/Not Resolved]
  - Peripheral venous disease [Not Recovered/Not Resolved]
  - Pneumonitis [Unknown]
  - Asthenia [Unknown]
  - Resting tremor [Unknown]
  - Hypovolaemia [Unknown]
  - Decreased appetite [Unknown]

NARRATIVE: CASE EVENT DATE: 20080621
